FAERS Safety Report 8815949 (Version 2)
Quarter: 2012Q4

REPORT INFORMATION
  Report Type: 
  Country: US (occurrence: US)
  Receive Date: 20120928
  Receipt Date: 20121108
  Transmission Date: 20130627
  Serious: Yes (Other)
  Sender: FDA-Public Use
  Company Number: US-ROCHE-788221

PATIENT
  Sex: Female
  Weight: 39.95 kg

DRUGS (2)
  1. ACCUTANE [Suspect]
     Indication: ACNE
     Route: 065
     Dates: start: 1993, end: 1994
  2. ACCUTANE [Suspect]
     Route: 065

REACTIONS (6)
  - Crohn^s disease [Unknown]
  - Inflammatory bowel disease [Unknown]
  - Emotional distress [Unknown]
  - Injury [Unknown]
  - Intestinal obstruction [Unknown]
  - Ileus [Unknown]
